FAERS Safety Report 9504152 (Version 1)
Quarter: 2013Q1

REPORT INFORMATION
  Report Type: Spontaneous
  Country: US (occurrence: None)
  Receive Date: 20130225
  Receipt Date: 20130225
  Transmission Date: 20140127
  Serious: No
  Sender: FDA-Public Use
  Company Number: 364184

PATIENT
  Age: 71 Year
  Sex: Male

DRUGS (3)
  1. VICTOZA (LIRAGLUTIDE) SOLUTION FOR INJECTION, 6MG/ML [Suspect]
     Indication: TYPE 2 DIABETES MELLITUS
     Route: 058
     Dates: start: 20120913, end: 20120914
  2. GLUCOPHAGE (METFORMIN HYDROCHLORIDE) [Concomitant]
  3. GLUCOTROL (GLIPIZIDE) [Concomitant]

REACTIONS (3)
  - Restless legs syndrome [None]
  - Blood glucose increased [None]
  - Constipation [None]
